FAERS Safety Report 22037521 (Version 1)
Quarter: 2023Q1

REPORT INFORMATION
  Report Type: Report from Study
  Country: KR (occurrence: KR)
  Receive Date: 20230227
  Receipt Date: 20230227
  Transmission Date: 20230418
  Serious: Yes (Hospitalization)
  Sender: FDA-Public Use
  Company Number: KR-ABBVIE-21K-090-4128507-00

PATIENT
  Age: 59 Year
  Sex: Male
  Weight: 54 kg

DRUGS (10)
  1. GLECAPREVIR\PIBRENTASVIR [Suspect]
     Active Substance: GLECAPREVIR\PIBRENTASVIR
     Indication: Chronic hepatitis C
     Dosage: 3 TABLET
     Route: 048
     Dates: start: 20210316, end: 20210329
  2. GLECAPREVIR\PIBRENTASVIR [Suspect]
     Active Substance: GLECAPREVIR\PIBRENTASVIR
     Indication: Chronic hepatitis C
     Dosage: 3 TABLET
     Route: 048
     Dates: start: 20210406, end: 20210601
  3. RENALMIN [Concomitant]
     Indication: End stage renal disease
     Dosage: 1 TABLET
     Route: 048
     Dates: start: 20200928
  4. UNICETIN [Concomitant]
     Indication: Cerebral infarction
     Dosage: 500 MILLIGRAM?TABLET
     Route: 048
     Dates: start: 20200928
  5. LETROZOLE [Concomitant]
     Active Substance: LETROZOLE
     Indication: Cerebral infarction
     Dosage: 100 MILLIGRAM
     Route: 048
     Dates: start: 20200928
  6. LEXAPRO [Concomitant]
     Active Substance: ESCITALOPRAM OXALATE
     Indication: Depression
     Dosage: 10 MG
     Route: 048
     Dates: start: 20200928
  7. INVELA [Concomitant]
     Indication: End stage renal disease
     Dosage: 1600 MILLIGRAM
     Route: 048
     Dates: start: 20200928
  8. GLICLAZIDE [Concomitant]
     Active Substance: GLICLAZIDE
     Indication: Diabetes mellitus
     Dosage: 60 MG
     Route: 048
     Dates: start: 20200928
  9. ONGLYZA [Concomitant]
     Active Substance: SAXAGLIPTIN HYDROCHLORIDE
     Indication: Diabetes mellitus
     Dosage: 2.5 MILLIGRAM TAB
     Route: 048
     Dates: start: 20200928
  10. REBAT [Concomitant]
     Indication: Gastrointestinal disorder prophylaxis
     Dosage: 3 TABLET
     Route: 048
     Dates: start: 20200928

REACTIONS (3)
  - Headache [Recovered/Resolved]
  - Vomiting [Recovered/Resolved]
  - Road traffic accident [Unknown]

NARRATIVE: CASE EVENT DATE: 20210326
